FAERS Safety Report 10186350 (Version 1)
Quarter: 2014Q2

REPORT INFORMATION
  Report Type: Spontaneous
  Country: US (occurrence: US)
  Receive Date: 20140521
  Receipt Date: 20140521
  Transmission Date: 20141212
  Serious: No
  Sender: FDA-Public Use
  Company Number: US-ASTRAZENECA-2014SE21203

PATIENT
  Age: 44 Year
  Sex: Female
  Weight: 112.9 kg

DRUGS (5)
  1. PULMICORT FLEXHALER [Suspect]
     Indication: ASTHMA
     Dosage: 180 MCG ONE PUFF BID
     Route: 055
  2. FLORADIL AEROLIZER [Concomitant]
     Indication: ASTHMA
     Dosage: 1 CAP BID
  3. AMLODIPINE BENAZEPRIL [Concomitant]
     Indication: HYPERTENSION
     Dosage: 5/20
  4. HCT [Concomitant]
     Indication: HYPERTENSION
  5. VIT D [Concomitant]
     Dosage: 50,000
     Route: 048

REACTIONS (5)
  - Amnesia [Not Recovered/Not Resolved]
  - Cognitive disorder [Not Recovered/Not Resolved]
  - Fatigue [Not Recovered/Not Resolved]
  - Muscle atrophy [Not Recovered/Not Resolved]
  - Tremor [Not Recovered/Not Resolved]
